FAERS Safety Report 8776956 (Version 1)
Quarter: 2012Q4

REPORT INFORMATION
  Report Type: 
  Country: US (occurrence: US)
  Receive Date: 20120911
  Receipt Date: 20120911
  Transmission Date: 20130627
  Serious: Yes (Other)
  Sender: FDA-Public Use
  Company Number: US-GLAXOSMITHKLINE-A0992170A

PATIENT
  Age: 77 Year
  Sex: Male

DRUGS (7)
  1. ADVAIR [Suspect]
     Indication: CHRONIC OBSTRUCTIVE PULMONARY DISEASE
     Dosage: 1PUFF Twice per day
     Route: 055
     Dates: start: 201109
  2. ONE A DAY VITAMIN [Concomitant]
  3. ALBUTEROL NEBULIZER [Concomitant]
  4. IPRATROPIUM BROMIDE [Concomitant]
  5. COMBIVENT [Concomitant]
  6. B VITAMIN [Concomitant]
  7. VITAMIN C [Concomitant]

REACTIONS (4)
  - Glaucoma [Recovering/Resolving]
  - Cataract [Recovering/Resolving]
  - Visual field defect [Recovering/Resolving]
  - Eye operation [Unknown]
